FAERS Safety Report 21272214 (Version 1)
Quarter: 2022Q3

REPORT INFORMATION
  Report Type: Spontaneous
  Country: US (occurrence: US)
  Receive Date: 20220830
  Receipt Date: 20220830
  Transmission Date: 20221026
  Serious: No
  Sender: FDA-Public Use
  Company Number: US-BRAINTREE LABORATORIES, INC.-2022BTE00489

PATIENT
  Age: 66 Year
  Sex: Male
  Weight: 79.365 kg

DRUGS (5)
  1. SUTAB [Suspect]
     Active Substance: MAGNESIUM SULFATE\POTASSIUM CHLORIDE\SODIUM SULFATE
     Indication: Colonoscopy
     Dosage: 2 X 12 TABLETS 1X
     Route: 048
     Dates: start: 20220607, end: 20220608
  2. UNSPECIFIED INGREDIENT [Concomitant]
     Active Substance: UNSPECIFIED INGREDIENT
     Dosage: UNK
     Dates: end: 20220607
  3. UNSPECIFIED DIABETIC PILL [Concomitant]
     Dosage: UNK
     Dates: end: 20220607
  4. LEVOTHYROXINE [Concomitant]
     Active Substance: LEVOTHYROXINE
     Dosage: UNK
     Dates: start: 202205, end: 20220607
  5. UNSPECIFIED CHOLESTEROL TABLET [Concomitant]
     Dosage: UNK
     Dates: end: 20220607

REACTIONS (1)
  - Drug ineffective [Recovered/Resolved]

NARRATIVE: CASE EVENT DATE: 20220608
